FAERS Safety Report 8998600 (Version 1)
Quarter: 2013Q1

REPORT INFORMATION
  Report Type: Spontaneous
  Country: US (occurrence: US)
  Receive Date: 20130103
  Receipt Date: 20130103
  Transmission Date: 20140127
  Serious: No
  Sender: FDA-Public Use
  Company Number: US-PFIZER INC-2012331166

PATIENT
  Sex: 0

DRUGS (1)
  1. CISPLATIN [Suspect]
     Indication: RENAL CANCER
     Dosage: UNK

REACTIONS (4)
  - Disease progression [Unknown]
  - Renal cancer [Unknown]
  - Hepatic function abnormal [Unknown]
  - Blood bilirubin increased [Unknown]
